FAERS Safety Report 7942989-X (Version None)
Quarter: 2011Q4

REPORT INFORMATION
  Report Type: 
  Country: None (occurrence: None)
  Receive Date: 20111128
  Receipt Date: 20111118
  Transmission Date: 20120403
  Serious: Yes (Other)
  Sender: FDA-Public Use
  Company Number: US-UCBSA-042649

PATIENT
  Sex: Female

DRUGS (8)
  1. MAXALT [Concomitant]
  2. VIMPAT [Suspect]
     Dosage: EVERY NIGHT AT BED TIME
  3. PINDOLOL [Concomitant]
  4. VIMPAT [Suspect]
  5. VIVELLE [Concomitant]
  6. LIPITOR [Concomitant]
  7. LEXAPRO [Concomitant]
  8. METHSCOPOLAMINE [Concomitant]

REACTIONS (2)
  - SJOGREN'S SYNDROME [None]
  - RHEUMATOID ARTHRITIS [None]
